FAERS Safety Report 12483059 (Version 4)
Quarter: 2019Q2

REPORT INFORMATION
  Report Type: Report from Study
  Country: US (occurrence: US)
  Receive Date: 20160620
  Receipt Date: 20190430
  Transmission Date: 20190711
  Serious: Yes (Hospitalization, Other)
  Sender: FDA-Public Use
  Company Number: PHHY2014US045158

PATIENT
  Age: 30 Year
  Sex: Female

DRUGS (25)
  1. REMERON [Concomitant]
     Active Substance: MIRTAZAPINE
     Indication: DEPRESSION
     Dosage: 15 MG, AT BED TIME
     Route: 048
     Dates: start: 201011, end: 20120901
  2. FLEXON [Concomitant]
     Active Substance: ACETAMINOPHEN\IBUPROFEN
     Dosage: 10 MG, PRN
     Route: 048
     Dates: start: 20121002
  3. BUTALBITAL/APAP [Concomitant]
     Active Substance: ACETAMINOPHEN\BUTALBITAL
     Indication: MIGRAINE
     Dosage: 50 MG, QID
     Route: 048
     Dates: start: 201009
  4. NAPROXEN. [Concomitant]
     Active Substance: NAPROXEN
     Indication: PAIN
     Dosage: 500 MG, PRN
     Route: 048
     Dates: start: 201008
  5. LEVAQUIN [Concomitant]
     Active Substance: LEVOFLOXACIN
     Indication: URINARY TRACT INFECTION
     Dosage: 500 MG, QD
     Route: 048
     Dates: start: 20140314, end: 20140316
  6. AMPYRA [Suspect]
     Active Substance: DALFAMPRIDINE
     Indication: MUSCLE SPASTICITY
     Dosage: 10 MG, Q12H
     Route: 048
     Dates: start: 20120523, end: 20140311
  7. FLEXON [Concomitant]
     Active Substance: ACETAMINOPHEN\IBUPROFEN
     Indication: MUSCLE SPASTICITY
     Dosage: 10 MG, TID
     Route: 048
     Dates: start: 20121002
  8. WELLBUTRIN [Concomitant]
     Active Substance: BUPROPION HYDROCHLORIDE
     Indication: DEPRESSION
     Dosage: 75 MG, QD
     Route: 048
     Dates: start: 20130105, end: 20140201
  9. MULTI-VIT [Concomitant]
     Active Substance: VITAMINS
     Indication: NUTRITIONAL SUPPLEMENTATION
     Dosage: 1 DF, QD
     Route: 048
     Dates: start: 20131101
  10. VISTARIL [Concomitant]
     Active Substance: HYDROXYZINE PAMOATE
     Indication: ANXIETY
     Dosage: 25 MG, QID
     Route: 048
     Dates: start: 201009, end: 20120901
  11. ZYPREXA [Concomitant]
     Active Substance: OLANZAPINE
     Indication: DEPRESSION
     Dosage: 5 MG, UNK
     Route: 048
     Dates: start: 201011, end: 20120901
  12. BUTALBITAL/APAP [Concomitant]
     Active Substance: ACETAMINOPHEN\BUTALBITAL
     Dosage: 325 MG, QID
     Route: 048
  13. PAXIL [Concomitant]
     Active Substance: PAROXETINE HYDROCHLORIDE
     Indication: DEPRESSION
     Dosage: 10 MG, TID
     Route: 048
     Dates: start: 201009, end: 20120901
  14. ALAVERT ALLERGY [Concomitant]
     Active Substance: LORATADINE
     Indication: SEASONAL ALLERGY
     Dosage: 10 MG, QD
     Route: 048
     Dates: start: 20121002
  15. ZOLOFT [Concomitant]
     Active Substance: SERTRALINE HYDROCHLORIDE
     Indication: SUICIDAL IDEATION
     Dosage: 100 MG, QD
     Route: 048
     Dates: start: 20101026, end: 20120901
  16. BACLOFEN. [Concomitant]
     Active Substance: BACLOFEN
     Indication: MUSCLE SPASTICITY
     Dosage: 10 MG, QID
     Route: 048
     Dates: start: 20100907
  17. MODAFINIL. [Concomitant]
     Active Substance: MODAFINIL
     Indication: FATIGUE
     Dosage: 100 MG, QD
     Route: 048
     Dates: start: 20131113
  18. HEPARIN [Concomitant]
     Active Substance: HEPARIN SODIUM
     Indication: THROMBOSIS PROPHYLAXIS
     Route: 065
     Dates: start: 20140309, end: 20140314
  19. PEPCID [Concomitant]
     Active Substance: FAMOTIDINE
     Indication: PROPHYLAXIS
     Route: 065
     Dates: start: 20140309, end: 20140314
  20. OXYBUTIN [Concomitant]
     Active Substance: OXYBUTYNIN
     Indication: NEUROGENIC BLADDER
     Dosage: 10 MG, QD
     Route: 048
     Dates: start: 20131111
  21. GILENYA [Suspect]
     Active Substance: FINGOLIMOD HYDROCHLORIDE
     Indication: MULTIPLE SCLEROSIS
     Dosage: 0.5 MG, QD
     Route: 048
     Dates: start: 20120416, end: 20140313
  22. ZOLOFT [Concomitant]
     Active Substance: SERTRALINE HYDROCHLORIDE
     Indication: DEPRESSION
     Dosage: 50 MG, QD
     Route: 048
     Dates: start: 20140201
  23. VITAMIN D3 [Concomitant]
     Active Substance: CHOLECALCIFEROL
     Indication: VITAMIN D DEFICIENCY
     Dosage: 1000 IU, QD
     Route: 048
     Dates: start: 20131113
  24. MIRENA [Concomitant]
     Active Substance: LEVONORGESTREL
     Indication: CONTRACEPTION
     Route: 015
     Dates: start: 2010
  25. ALPRAZOLAM. [Concomitant]
     Active Substance: ALPRAZOLAM
     Indication: ANXIETY
     Dosage: 1 MG, PRN
     Route: 048
     Dates: start: 20130606, end: 20131113

REACTIONS (27)
  - Blood alkaline phosphatase increased [Unknown]
  - Eosinophil count decreased [Recovered/Resolved]
  - Mean cell volume increased [Unknown]
  - Anion gap increased [Recovered/Resolved]
  - Neutrophilia [Recovered/Resolved]
  - Hyponatraemia [Recovered/Resolved]
  - Red blood cell count decreased [Unknown]
  - Basophil count decreased [Unknown]
  - Generalised tonic-clonic seizure [Recovered/Resolved]
  - Neutropenia [Recovered/Resolved]
  - Urinary tract infection [Recovered/Resolved]
  - Mean cell haemoglobin increased [Unknown]
  - Weight decreased [Unknown]
  - Hyperkalaemia [Recovered/Resolved]
  - Dehydration [Recovered/Resolved]
  - Carbon dioxide decreased [Unknown]
  - Monocyte count increased [Unknown]
  - Hypotension [Recovered/Resolved]
  - Lymphocytosis [Recovered/Resolved]
  - Blood glucose increased [Recovered/Resolved]
  - Blood creatinine increased [Recovered/Resolved]
  - Lymphopenia [Unknown]
  - Blood calcium increased [Unknown]
  - Leukopenia [Unknown]
  - Hypernatraemia [Recovered/Resolved]
  - Eosinophilia [Recovered/Resolved]
  - Blood immunoglobulin G increased [Unknown]

NARRATIVE: CASE EVENT DATE: 20140309
